FAERS Safety Report 5965588-8 (Version None)
Quarter: 2008Q4

REPORT INFORMATION
  Report Type: 
  Country: None (occurrence: None)
  Receive Date: 20081121
  Receipt Date: 20081110
  Transmission Date: 20090506
  Serious: Yes (Death, Life-Threatening)
  Sender: FDA-Public Use
  Company Number: 004832

PATIENT
  Age: 82 Year
  Sex: Male
  Weight: 49 kg

DRUGS (11)
  1. PLETAL [Suspect]
     Indication: CORONARY ARTERY STENOSIS
     Dosage: 100MG, BID ORAL
     Route: 048
     Dates: start: 20080623, end: 20081027
  2. BUFFERIN [Suspect]
     Indication: CORONARY ARTERY STENOSIS
     Dosage: 81 MG, QD ORAL
     Route: 048
     Dates: start: 20080614, end: 20081027
  3. PLAVIX [Suspect]
     Indication: CORONARY ARTERY STENOSIS
     Dosage: 75 MG, QD; ORAL
     Route: 048
     Dates: start: 20080614, end: 20081027
  4. OPALMON (LIMAPROST ALFADEX) TABLET [Suspect]
     Indication: ARTERIOSCLEROSIS OBLITERANS
     Dosage: 5 MG, TID; ORAL
     Route: 048
     Dates: start: 20080620, end: 20081027
  5. RIMATIL (BUCILLAMINE) TABLET [Concomitant]
  6. MUCOSTA (REBAMIPIDE) TABLET [Concomitant]
  7. TAKEPRON (LANSOPRAZOLE) TABLET [Concomitant]
  8. MOBIC (MELOXICAM) CAPSULE [Concomitant]
  9. SIGMART (NICORANDIL) TABLET [Concomitant]
  10. ITOROL (ISOSORBIDE MONONITRATE) TABLET [Concomitant]
  11. DIOVAN [Concomitant]

REACTIONS (2)
  - CEREBRAL HAEMORRHAGE [None]
  - ENCEPHALOCELE [None]
